FAERS Safety Report 7606885-X (Version None)
Quarter: 2011Q3

REPORT INFORMATION
  Report Type: 
  Country: None (occurrence: None)
  Receive Date: 20110713
  Receipt Date: 20110705
  Transmission Date: 20111222
  Serious: Yes (Hospitalization)
  Sender: FDA-Public Use
  Company Number: IT-GLAXOSMITHKLINE-B0732366A

PATIENT
  Sex: Female

DRUGS (8)
  1. LANOXIN [Suspect]
     Indication: ARRHYTHMIA
     Route: 048
     Dates: start: 20110514, end: 20110617
  2. OMEPRAZOLE [Concomitant]
     Dosage: 20MG PER DAY
  3. IRBESARTAN + HYDROCHLOROTHIAZIDE [Concomitant]
  4. ATORVASTATIN CALCIUM [Concomitant]
  5. LASIX [Concomitant]
  6. SINTROM [Concomitant]
  7. CORDARONE [Suspect]
     Indication: ARRHYTHMIA
     Dates: start: 20110514, end: 20110617
  8. HALCION [Concomitant]

REACTIONS (2)
  - BRADYCARDIA [None]
  - ATRIAL FIBRILLATION [None]
